FAERS Safety Report 9636526 (Version 2)
Quarter: 2013Q4

REPORT INFORMATION
  Report Type: Spontaneous
  Country: US (occurrence: None)
  Receive Date: 20131017
  Receipt Date: 20131101
  Transmission Date: 20140711
  Serious: Yes (Other)
  Sender: FDA-Public Use
  Company Number: ADR-2013-01853

PATIENT
  Sex: Female

DRUGS (8)
  1. BACLOFEN [Suspect]
     Dosage: 483.75 MCG/DAY
  2. MORPHINE [Suspect]
     Dosage: 12.9MG/DAY
  3. KLONOPIN [Suspect]
     Indication: ANXIETY
     Dosage: ONE TAB TID PM
  4. SERTRALINE HCL [Suspect]
     Route: 048
  5. DEXEDRINE [Suspect]
     Dosage: ONE CAP BID PO
     Route: 048
  6. PLAVIX [Suspect]
     Dosage: ONE TABLET PO BID
     Route: 048
  7. ZANTAC [Suspect]
     Dosage: ONE TAB BID PO
     Route: 048
  8. ATENOLOL [Suspect]
     Dosage: ONE TAB QID PO
     Route: 048

REACTIONS (20)
  - Muscle spasticity [None]
  - Pain [None]
  - Fatigue [None]
  - Joint swelling [None]
  - Muscular weakness [None]
  - Orthopnoea [None]
  - Sputum increased [None]
  - Arthralgia [None]
  - Joint stiffness [None]
  - Back pain [None]
  - Impaired healing [None]
  - Amnesia [None]
  - Hypoaesthesia [None]
  - Balance disorder [None]
  - Anxiety [None]
  - Depression [None]
  - Temperature intolerance [None]
  - Contusion [None]
  - Infection [None]
  - Therapeutic response decreased [None]
